FAERS Safety Report 8329035-3 (Version None)
Quarter: 2012Q2

REPORT INFORMATION
  Report Type: 
  Country: None (occurrence: None)
  Receive Date: 20120502
  Receipt Date: 20120424
  Transmission Date: 20120825
  Serious: Yes (Hospitalization, Other)
  Sender: FDA-Public Use
  Company Number: NZ-JNJFOC-20120409312

PATIENT
  Sex: Male

DRUGS (3)
  1. XARELTO [Suspect]
     Indication: HIP ARTHROPLASTY
     Route: 048
     Dates: start: 20120228, end: 20120301
  2. WHOLE BLOOD [Concomitant]
  3. XARELTO [Suspect]
     Indication: THROMBOSIS PROPHYLAXIS
     Route: 048
     Dates: start: 20120228, end: 20120301

REACTIONS (11)
  - DYSPNOEA [None]
  - TACHYCARDIA [None]
  - OEDEMA PERIPHERAL [None]
  - POST PROCEDURAL HAEMATOMA [None]
  - MYOCARDIAL INFARCTION [None]
  - WHEEZING [None]
  - CONTUSION [None]
  - ACUTE MYOCARDIAL INFARCTION [None]
  - DYSPNOEA EXERTIONAL [None]
  - ANAEMIA [None]
  - POST PROCEDURAL DISCHARGE [None]
